FAERS Safety Report 4884373-1 (Version None)
Quarter: 2006Q1

REPORT INFORMATION
  Report Type: 
  Country: None (occurrence: None)
  Receive Date: 20060117
  Receipt Date: 20060117
  Transmission Date: 20060701
  Serious: No
  Sender: FDA-Public Use
  Company Number: None

PATIENT
  Age: 45 Year
  Sex: Female
  Weight: 75.2971 kg

DRUGS (2)
  1. LEXIVA [Suspect]
     Dosage: 1 CAP BID PO
     Route: 048
     Dates: start: 20051113, end: 20051122
  2. NORVIR [Suspect]
     Dosage: 1 TAB BID PO
     Route: 048
     Dates: start: 20051113, end: 20051122

REACTIONS (1)
  - RASH [None]
